FAERS Safety Report 19153348 (Version 1)
Quarter: 2021Q2

REPORT INFORMATION
  Report Type: Spontaneous
  Country: US (occurrence: US)
  Receive Date: 20210418
  Receipt Date: 20210418
  Transmission Date: 20210717
  Serious: Yes (Hospitalization)
  Sender: FDA-Public Use
  Company Number: None

PATIENT
  Age: 20 Year
  Sex: Female
  Weight: 56.25 kg

DRUGS (5)
  1. VITAMIN D [Concomitant]
     Active Substance: VITAMIN D NOS
  2. LEVOCITERIZINE [Concomitant]
  3. NUVARING [Suspect]
     Active Substance: ETHINYL ESTRADIOL\ETONOGESTREL
     Indication: DYSMENORRHOEA
     Route: 067
     Dates: start: 20200820, end: 20210418
  4. LEVOALBUTEROL [Concomitant]
     Active Substance: LEVALBUTEROL
  5. SINGULAIR [Concomitant]
     Active Substance: MONTELUKAST SODIUM

REACTIONS (4)
  - Migraine [None]
  - Abdominal pain upper [None]
  - Pain in extremity [None]
  - White blood cell count increased [None]

NARRATIVE: CASE EVENT DATE: 20210418
